FAERS Safety Report 8872772 (Version 1)
Quarter: 2012Q4

REPORT INFORMATION
  Report Type: 
  Country: IT (occurrence: IT)
  Receive Date: 20121029
  Receipt Date: 20121029
  Transmission Date: 20130627
  Serious: Yes (Hospitalization)
  Sender: FDA-Public Use
  Company Number: IT-NOVOPROD-362552

PATIENT
  Age: 85 Year
  Sex: Male

DRUGS (12)
  1. LEVEMIR FLEXPEN [Suspect]
     Indication: TYPE 2 DIABETES MELLITUS
     Dosage: 9U/die
     Route: 058
     Dates: start: 20110101, end: 20120920
  2. NOVORAPID FLEXPEN [Suspect]
     Indication: TYPE 2 DIABETES MELLITUS
     Dosage: 12 U, qd
     Route: 058
     Dates: start: 20110101, end: 20120920
  3. EUTIROX [Concomitant]
     Indication: HYPOTHYROIDISM
     Dosage: 1 tablet/die
  4. LASIX                              /00032601/ [Concomitant]
     Indication: HYPERTENSION
     Dosage: 1 tablet/die
     Route: 065
  5. PLAUNAC [Concomitant]
     Indication: HYPERTENSION
     Dosage: 1 tablet/die
     Route: 065
  6. RYTMONORM [Concomitant]
     Indication: SUPRAVENTRICULAR TACHYCARDIA
     Dosage: 2 tablets/die
  7. PROSTIDE                           /00726902/ [Concomitant]
     Indication: BENIGN PROSTATIC HYPERPLASIA
     Dosage: 1 tablet/die
  8. PLAVIX [Concomitant]
     Indication: CARDIOVASCULAR EVENT PROPHYLAXIS
     Dosage: 1 tablet/die
     Route: 065
  9. ZYLORIC [Concomitant]
     Indication: HYPERURICAEMIA
     Dosage: 3 tablets/die
     Route: 065
  10. FOLIDEX [Concomitant]
     Indication: FOLATE DEFICIENCY
  11. BECOZYM                            /00228301/ [Concomitant]
     Indication: HYPOVITAMINOSIS
  12. PANTORC [Concomitant]
     Indication: PROPHYLAXIS AGAINST GASTROINTESTINAL ULCER

REACTIONS (2)
  - Sopor [Recovered/Resolved]
  - Hypoglycaemia [Recovered/Resolved]
